FAERS Safety Report 12256211 (Version 1)
Quarter: 2016Q2

REPORT INFORMATION
  Report Type: Spontaneous
  Country: US (occurrence: None)
  Receive Date: 20160411
  Receipt Date: 20160411
  Transmission Date: 20160815
  Serious: Yes (Disabling)
  Sender: FDA-Public Use
  Company Number: None

PATIENT
  Age: 3 Year
  Sex: Female
  Weight: 14.06 kg

DRUGS (3)
  1. MIRALAX [Suspect]
     Active Substance: POLYETHYLENE GLYCOL 3350
     Indication: CONSTIPATION
     Dosage: 1 CAPFUL IN THE MORNING TAKEN BY MOUTH
     Route: 048
     Dates: start: 20151006, end: 20160401
  2. PROBIOTIC [Concomitant]
     Active Substance: PROBIOTICS NOS
  3. ENEMA (SODIUM PHOSPHATE, DIBASIC\SODIUM PHOSPHATE, MONOBASIC) [Concomitant]
     Active Substance: SODIUM PHOSPHATE, DIBASIC\SODIUM PHOSPHATE, MONOBASIC

REACTIONS (4)
  - Impulsive behaviour [None]
  - Speech disorder [None]
  - Nervous system disorder [None]
  - Abnormal behaviour [None]

NARRATIVE: CASE EVENT DATE: 20160407
